FAERS Safety Report 6030031-X (Version None)
Quarter: 2008Q4

REPORT INFORMATION
  Report Type: 
  Country: None (occurrence: None)
  Receive Date: 20081222
  Receipt Date: 20081009
  Transmission Date: 20090506
  Serious: Yes (Other)
  Sender: FDA-Public Use
  Company Number: US-WYE-H06339008

PATIENT
  Sex: Female
  Weight: 72.64 kg

DRUGS (1)
  1. PRISTIQ [Suspect]
     Dosage: ORAL
     Route: 048
     Dates: start: 20080701, end: 20080901

REACTIONS (1)
  - MIGRAINE [None]
